FAERS Safety Report 6610764-4 (Version None)
Quarter: 2010Q1

REPORT INFORMATION
  Report Type: 
  Country: None (occurrence: None)
  Receive Date: 20100302
  Receipt Date: 20100222
  Transmission Date: 20100710
  Serious: Yes (Hospitalization)
  Sender: FDA-Public Use
  Company Number: B0631076A

PATIENT
  Age: 75 Year
  Sex: Female
  Weight: 46.2 kg

DRUGS (25)
  1. LAMOTRIGINE [Suspect]
     Dosage: 25MG PER DAY
     Route: 048
     Dates: start: 20090929, end: 20090930
  2. LAMOTRIGINE [Suspect]
     Dosage: 50MG PER DAY
     Route: 048
     Dates: start: 20091001, end: 20091111
  3. LAMOTRIGINE [Suspect]
     Dosage: 100MG PER DAY
     Route: 048
     Dates: start: 20091112, end: 20100116
  4. FENTANYL [Suspect]
     Indication: PAIN
     Route: 062
     Dates: start: 20091130, end: 20091220
  5. FENTANYL [Suspect]
     Route: 062
     Dates: start: 20091221, end: 20100118
  6. NITROFURANTOIN [Suspect]
     Dosage: 100MG PER DAY
     Route: 048
     Dates: start: 20091214, end: 20100124
  7. LACTULOSE [Concomitant]
  8. SENNA [Concomitant]
  9. PROCYCLIDINE HYDROCHLORIDE [Concomitant]
     Route: 048
  10. FOLIC ACID [Concomitant]
  11. ALENDRONIC ACID [Concomitant]
  12. ASPIRIN [Concomitant]
  13. AMLODIPINE [Concomitant]
  14. ZOPICLONE [Concomitant]
  15. HALOPERIDOL [Concomitant]
  16. FORTISIP [Concomitant]
  17. ACETAMINOPHEN AND CODEINE PHOSPHATE [Concomitant]
  18. SIMVASTATIN [Concomitant]
  19. TRIMETHOPRIM [Concomitant]
  20. RISPERIDONE [Concomitant]
  21. LORAZEPAM [Concomitant]
  22. HYDROXOCOBALAMIN [Concomitant]
     Route: 030
  23. FLUCONAZOLE [Concomitant]
  24. MICONAZOLE [Concomitant]
     Route: 061
  25. CIPROFLOXACIN [Concomitant]

REACTIONS (3)
  - OEDEMA [None]
  - RASH [None]
  - SWELLING FACE [None]
